FAERS Safety Report 6382699-6 (Version None)
Quarter: 2009Q3

REPORT INFORMATION
  Report Type: 
  Country: None (occurrence: None)
  Receive Date: 20090930
  Receipt Date: 20090917
  Transmission Date: 20100115
  Serious: Yes (Other)
  Sender: FDA-Public Use
  Company Number: GB-MYLANLABS-2009S1016539

PATIENT
  Age: 47 Year
  Sex: Male

DRUGS (4)
  1. AMISULPRIDE [Interacting]
     Indication: SCHIZOPHRENIA, PARANOID TYPE
  2. CIPROFLOXACIN HYDROCHLORIDE [Suspect]
     Indication: DRUG USE FOR UNKNOWN INDICATION
  3. CLOZAPINE [Interacting]
     Indication: DRUG USE FOR UNKNOWN INDICATION
  4. LORAZEPAM [Interacting]
     Indication: DRUG USE FOR UNKNOWN INDICATION

REACTIONS (3)
  - DRUG INTERACTION [None]
  - DRUG LEVEL INCREASED [None]
  - ORCHITIS [None]
